FAERS Safety Report 9112128 (Version 2)
Quarter: 2014Q1

REPORT INFORMATION
  Report Type: Spontaneous
  Country: US (occurrence: US)
  Receive Date: 20130219
  Receipt Date: 20140213
  Transmission Date: 20141002
  Serious: No
  Sender: FDA-Public Use
  Company Number: US-BRISTOL-MYERS SQUIBB COMPANY-17039066

PATIENT
  Age: 62 Year
  Sex: Female
  Weight: 56 kg

DRUGS (1)
  1. ABATACEPT SUBQ INJECTION 125MG/ML [Suspect]
     Indication: RHEUMATOID ARTHRITIS
     Dosage: INTD,RESTARTED?LAST USE OF ORENCIA 29SEP2013
     Route: 058
     Dates: start: 20120927

REACTIONS (3)
  - Sinusitis [Unknown]
  - Tooth disorder [Unknown]
  - Weight increased [Unknown]
